FAERS Safety Report 6311408-1 (Version None)
Quarter: 2009Q3

REPORT INFORMATION
  Report Type: 
  Country: None (occurrence: None)
  Receive Date: 20090817
  Receipt Date: 20090805
  Transmission Date: 20100115
  Serious: Yes (Other)
  Sender: FDA-Public Use
  Company Number: JP-PFIZER INC-2009251821

PATIENT
  Age: 65 Year

DRUGS (1)
  1. SUNITINIB MALATE [Suspect]
     Indication: RENAL CELL CARCINOMA
     Dosage: TDD: 50 MG
     Route: 048
     Dates: start: 20090702

REACTIONS (1)
  - LIVER FUNCTION TEST ABNORMAL [None]
